FAERS Safety Report 24010222 (Version 1)
Quarter: 2024Q2

REPORT INFORMATION
  Report Type: Spontaneous
  Country: US (occurrence: None)
  Receive Date: 20240624
  Receipt Date: 20240624
  Transmission Date: 20240716
  Serious: Yes (Life-Threatening, Other)
  Sender: FDA-Public Use
  Company Number: None

PATIENT
  Age: 16 Year
  Sex: Female

DRUGS (5)
  1. ZONISAMIDE [Suspect]
     Active Substance: ZONISAMIDE
     Dates: end: 20220323
  2. ONFI [Concomitant]
     Active Substance: CLOBAZAM
  3. KEPPRA [Concomitant]
     Active Substance: LEVETIRACETAM
  4. VALPROIC ACID [Concomitant]
  5. LAMOTRIGINE [Concomitant]
     Active Substance: LAMOTRIGINE

REACTIONS (4)
  - Fatigue [None]
  - Fatigue [None]
  - Somnolence [None]
  - Seizure [None]
